FAERS Safety Report 6209603-5 (Version None)
Quarter: 2009Q2

REPORT INFORMATION
  Report Type: 
  Country: None (occurrence: None)
  Receive Date: 20090527
  Receipt Date: 20090513
  Transmission Date: 20091009
  Serious: Yes (Other)
  Sender: FDA-Public Use
  Company Number: CIP09001024

PATIENT
  Age: 60 Year
  Sex: Female

DRUGS (2)
  1. ACTONEL [Suspect]
     Dosage: 75 MG, ORAL
     Route: 048
     Dates: start: 20090301, end: 20090101
  2. ACTONEL [Suspect]
     Dosage: 35 MG, ORAL
     Route: 048
     Dates: end: 20090301

REACTIONS (2)
  - CHOLELITHIASIS [None]
  - DIARRHOEA [None]
